FAERS Safety Report 7902175-6 (Version None)
Quarter: 2011Q4

REPORT INFORMATION
  Report Type: 
  Country: None (occurrence: None)
  Receive Date: 20111108
  Receipt Date: 20111104
  Transmission Date: 20120403
  Serious: Yes (Death, Hospitalization)
  Sender: FDA-Public Use
  Company Number: JP-ABBOTT-11P-087-0857435-00

PATIENT
  Sex: Male

DRUGS (4)
  1. PL GRAN. [Suspect]
     Indication: BRONCHITIS
     Route: 048
     Dates: start: 20100104, end: 20100408
  2. CEFDINIR [Suspect]
     Indication: BRONCHITIS
     Route: 048
     Dates: start: 20100104, end: 20100108
  3. GARENOXACIN MESYLATE [Suspect]
     Indication: BRONCHITIS
     Route: 048
     Dates: start: 20100113, end: 20100115
  4. LOXONIN [Suspect]
     Indication: ANTIPYRESIS
     Route: 048
     Dates: start: 20100113, end: 20100115

REACTIONS (4)
  - CONTINUOUS HAEMODIAFILTRATION [None]
  - HEPATITIS FULMINANT [None]
  - MULTI-ORGAN FAILURE [None]
  - CARDIO-RESPIRATORY ARREST [None]
